FAERS Safety Report 4993522-6 (Version None)
Quarter: 2006Q2

REPORT INFORMATION
  Report Type: 
  Country: None (occurrence: None)
  Receive Date: 20060503
  Receipt Date: 20060503
  Transmission Date: 20061013
  Serious: Yes (Life-Threatening)
  Sender: FDA-Public Use
  Company Number: None

PATIENT
  Sex: Male

DRUGS (7)
  1. OXALIPLATIN [Suspect]
     Indication: COLON CANCER STAGE III
     Dosage: 85MG/M2   Q3WEEKS X 12   IV
     Route: 042
     Dates: start: 20050701, end: 20060101
  2. FLUOROURACIL [Concomitant]
  3. VYTORIN [Concomitant]
  4. LEUCOVORIN [Concomitant]
  5. LANSOPRAZOLE [Concomitant]
  6. ALLOPURINOL [Concomitant]
  7. RISEDRONATE [Concomitant]

REACTIONS (2)
  - INTERSTITIAL LUNG DISEASE [None]
  - PERIPHERAL SENSORY NEUROPATHY [None]
